FAERS Safety Report 5004000-2 (Version None)
Quarter: 2006Q2

REPORT INFORMATION
  Report Type: 
  Country: None (occurrence: None)
  Receive Date: 20060517
  Receipt Date: 20060503
  Transmission Date: 20061013
  Serious: Yes (Other)
  Sender: FDA-Public Use
  Company Number: 2006AC00890

PATIENT
  Age: 35 Year
  Sex: Male
  Weight: 78 kg

DRUGS (3)
  1. NEXIUM [Suspect]
     Indication: GASTROOESOPHAGEAL REFLUX DISEASE
     Route: 048
     Dates: start: 20051201
  2. NEXIUM [Suspect]
     Route: 048
     Dates: end: 20060401
  3. NASONEX [Concomitant]
     Route: 055

REACTIONS (2)
  - NEPHROLITHIASIS [None]
  - RENAL COLIC [None]
